FAERS Safety Report 5340907-4 (Version None)
Quarter: 2007Q2

REPORT INFORMATION
  Report Type: 
  Country: None (occurrence: None)
  Receive Date: 20070531
  Receipt Date: 20070521
  Transmission Date: 20071010
  Serious: Yes (Other)
  Sender: FDA-Public Use
  Company Number: JP-MERCK-0705USA00111

PATIENT
  Age: 70 Year
  Sex: Female

DRUGS (4)
  1. FOSAMAX [Suspect]
     Indication: OSTEOPOROSIS
     Route: 048
     Dates: start: 20070428, end: 20070101
  2. NITRENDIPINE [Concomitant]
     Indication: HYPERTENSION
     Route: 048
     Dates: start: 20060811
  3. RIZE [Concomitant]
     Indication: ANXIETY
     Route: 048
     Dates: start: 20070328
  4. LIPIDIL [Concomitant]
     Indication: HYPERLIPIDAEMIA
     Route: 048
     Dates: start: 20050704

REACTIONS (4)
  - DYSPHONIA [None]
  - HAEMORRHAGE SUBCUTANEOUS [None]
  - MYALGIA [None]
  - URINE OUTPUT DECREASED [None]
